FAERS Safety Report 5358208-7 (Version None)
Quarter: 2007Q2

REPORT INFORMATION
  Report Type: 
  Country: None (occurrence: None)
  Receive Date: 20070530
  Receipt Date: 20061129
  Transmission Date: 20071010
  Serious: Yes (Other)
  Sender: FDA-Public Use
  Company Number: US200603004694

PATIENT
  Age: 58 Year
  Sex: Male
  Weight: 88.4 kg

DRUGS (1)
  1. ZYPREXA [Suspect]
     Indication: DEPRESSION
     Dosage: 10 MG
     Dates: start: 20021101, end: 20031101

REACTIONS (2)
  - DIABETES MELLITUS [None]
  - PANCREATITIS [None]
